FAERS Safety Report 4897074-0 (Version None)
Quarter: 2006Q1

REPORT INFORMATION
  Report Type: 
  Country: None (occurrence: None)
  Receive Date: 20060127
  Receipt Date: 20060116
  Transmission Date: 20060701
  Serious: Yes (Death, Hospitalization)
  Sender: FDA-Public Use
  Company Number: 2006P1000031

PATIENT
  Age: 90 Year
  Sex: Female

DRUGS (4)
  1. RETEPLASE (RETEPLASE) [Suspect]
     Indication: ACUTE MYOCARDIAL INFARCTION
     Dosage: 10 UNITS, IV
     Route: 042
     Dates: start: 20051119, end: 20051119
  2. HEPARIN [Suspect]
     Indication: ACUTE MYOCARDIAL INFARCTION
     Dosage: 5000 UNITS/ML; IV
     Route: 042
     Dates: start: 20051119, end: 20051119
  3. NITRO-SPRAY [Concomitant]
  4. FUROSEMIDE [Concomitant]

REACTIONS (3)
  - CEREBRAL HAEMORRHAGE [None]
  - GENERAL PHYSICAL HEALTH DETERIORATION [None]
  - RESPIRATORY DISORDER [None]
